FAERS Safety Report 12447152 (Version 2)
Quarter: 2016Q2

REPORT INFORMATION
  Report Type: Spontaneous
  Country: JP (occurrence: JP)
  Receive Date: 20160608
  Receipt Date: 20160616
  Transmission Date: 20160815
  Serious: Yes (Hospitalization)
  Sender: FDA-Public Use
  Company Number: JP-NOVOPROD-494808

PATIENT
  Age: 20 Year
  Sex: Male
  Weight: 52 kg

DRUGS (8)
  1. APIDRA [Concomitant]
     Active Substance: INSULIN GLULISINE
     Dosage: 20 IU, QD
     Route: 058
     Dates: start: 20160603
  2. TRESIBA CHU FLEXTOUCH [Suspect]
     Active Substance: INSULIN DEGLUDEC
     Dosage: 6U/BEFORE BEDTIME
     Route: 058
     Dates: start: 20160604
  3. APIDRA [Concomitant]
     Active Substance: INSULIN GLULISINE
     Indication: TYPE 1 DIABETES MELLITUS
     Dosage: 30 IU, QD
     Route: 058
  4. APIDRA [Concomitant]
     Active Substance: INSULIN GLULISINE
     Dosage: 18 IU, QD (6-6-6)
     Route: 058
     Dates: start: 20160604
  5. TRESIBA CHU FLEXTOUCH [Suspect]
     Active Substance: INSULIN DEGLUDEC
     Indication: TYPE 1 DIABETES MELLITUS
     Dosage: 12 U, QD (BEFORE BEDTIME)
     Route: 058
  6. TRESIBA CHU FLEXTOUCH [Suspect]
     Active Substance: INSULIN DEGLUDEC
     Dosage: 6 U BEFORE BEDTIME
     Route: 058
     Dates: start: 20160603
  7. TRESIBA CHU FLEXTOUCH [Suspect]
     Active Substance: INSULIN DEGLUDEC
     Indication: SUICIDE ATTEMPT
     Dosage: 300 IU
     Route: 058
     Dates: start: 20160601, end: 20160601
  8. APIDRA [Concomitant]
     Active Substance: INSULIN GLULISINE
     Dosage: 8 IU
     Route: 058
     Dates: start: 20160602

REACTIONS (3)
  - Intentional overdose [Unknown]
  - Hypoglycaemia [Recovered/Resolved]
  - Suicide attempt [Recovered/Resolved]

NARRATIVE: CASE EVENT DATE: 20160601
